FAERS Safety Report 4544184-3 (Version None)
Quarter: 2004Q4

REPORT INFORMATION
  Report Type: 
  Country: None (occurrence: None)
  Receive Date: 20041230
  Receipt Date: 20041215
  Transmission Date: 20050328
  Serious: Yes (Life-Threatening)
  Sender: FDA-Public Use
  Company Number: 2004USFACT00179

PATIENT
  Age: 40 Year
  Sex: Female

DRUGS (2)
  1. FACTIVE [Suspect]
     Indication: RESPIRATORY TRACT INFECTION BACTERIAL
     Dates: start: 20041201, end: 20041201
  2. PREDNISONE (PREDNISONE) [Concomitant]

REACTIONS (1)
  - ANAPHYLACTIC REACTION [None]
